FAERS Safety Report 13444543 (Version 1)
Quarter: 2017Q2

REPORT INFORMATION
  Report Type: Spontaneous
  Country: US (occurrence: US)
  Receive Date: 20170414
  Receipt Date: 20170414
  Transmission Date: 20170830
  Serious: No
  Sender: FDA-Public Use
  Company Number: US-NOVOPROD-529566

PATIENT
  Age: 71 Year
  Sex: Male

DRUGS (2)
  1. TRESIBA FLEXTOUCH U200 [Suspect]
     Active Substance: INSULIN DEGLUDEC
     Indication: TYPE 2 DIABETES MELLITUS
     Dosage: 16 U, QD
     Route: 058
     Dates: start: 201701, end: 201701
  2. TRESIBA FLEXTOUCH U200 [Suspect]
     Active Substance: INSULIN DEGLUDEC
     Dosage: 16 U QD
     Route: 058
     Dates: start: 201701, end: 201701

REACTIONS (6)
  - Rhinorrhoea [Unknown]
  - Injection site pain [Unknown]
  - Paraesthesia [Unknown]
  - Incorrect dose administered [Unknown]
  - Blood glucose increased [Unknown]
  - Headache [Unknown]

NARRATIVE: CASE EVENT DATE: 201701
